FAERS Safety Report 19660686 (Version 1)
Quarter: 2021Q3

REPORT INFORMATION
  Report Type: Report from Study
  Country: CA (occurrence: CA)
  Receive Date: 20210805
  Receipt Date: 20210805
  Transmission Date: 20211014
  Serious: Yes (Other)
  Sender: FDA-Public Use
  Company Number: CA-ACCORD-234146

PATIENT
  Age: 33 Year
  Sex: Female

DRUGS (12)
  1. TACROLIMUS. [Suspect]
     Active Substance: TACROLIMUS
     Indication: SYSTEMIC LUPUS ERYTHEMATOSUS
     Route: 065
  2. MYCOPHENOLIC ACID. [Suspect]
     Active Substance: MYCOPHENOLIC ACID
     Indication: SYSTEMIC LUPUS ERYTHEMATOSUS
     Dosage: 1 EVERY 1 DAYS
     Route: 065
  3. RITUXIMAB. [Suspect]
     Active Substance: RITUXIMAB
     Indication: SYSTEMIC LUPUS ERYTHEMATOSUS
     Route: 042
  4. RITUXIMAB. [Suspect]
     Active Substance: RITUXIMAB
     Indication: SYSTEMIC LUPUS ERYTHEMATOSUS
     Route: 065
  5. PREDNISONE. [Suspect]
     Active Substance: PREDNISONE
     Indication: SYSTEMIC LUPUS ERYTHEMATOSUS
     Dosage: 1 EVERY 1 DAYS
     Route: 048
  6. MYCOPHENOLIC ACID. [Suspect]
     Active Substance: MYCOPHENOLIC ACID
     Indication: SYSTEMIC LUPUS ERYTHEMATOSUS
     Dosage: 1 EVERY 1 DAYS
     Route: 065
  7. METHYLPREDNISOLONE. [Suspect]
     Active Substance: METHYLPREDNISOLONE
     Indication: PREMEDICATION
     Route: 042
  8. TACROLIMUS. [Suspect]
     Active Substance: TACROLIMUS
     Indication: SYSTEMIC LUPUS ERYTHEMATOSUS
     Dosage: 1 EVERY 1 DAYS
     Route: 065
  9. COUMADIN [Suspect]
     Active Substance: WARFARIN SODIUM
     Indication: PRODUCT USED FOR UNKNOWN INDICATION
     Route: 065
  10. PREDNISONE. [Suspect]
     Active Substance: PREDNISONE
     Indication: SYSTEMIC LUPUS ERYTHEMATOSUS
     Dosage: 1 EVERY 1 DAYS
     Route: 048
  11. TACROLIMUS. [Suspect]
     Active Substance: TACROLIMUS
     Indication: SYSTEMIC LUPUS ERYTHEMATOSUS
     Route: 065
  12. TACROLIMUS. [Suspect]
     Active Substance: TACROLIMUS
     Indication: SYSTEMIC LUPUS ERYTHEMATOSUS
     Route: 065

REACTIONS (10)
  - Proteinuria [Not Recovered/Not Resolved]
  - Therapy partial responder [Not Recovered/Not Resolved]
  - Subdural haemorrhage [Not Recovered/Not Resolved]
  - Systemic lupus erythematosus [Not Recovered/Not Resolved]
  - Weight increased [Not Recovered/Not Resolved]
  - Intentional product use issue [Unknown]
  - Venous thrombosis [Not Recovered/Not Resolved]
  - Off label use [Unknown]
  - Craniotomy [Not Recovered/Not Resolved]
  - Deep vein thrombosis [Not Recovered/Not Resolved]
